FAERS Safety Report 24110755 (Version 2)
Quarter: 2024Q3

REPORT INFORMATION
  Report Type: Report from Study
  Country: NI (occurrence: NI)
  Receive Date: 20240718
  Receipt Date: 20240802
  Transmission Date: 20241016
  Serious: Yes (Other)
  Sender: BAYER
  Company Number: NI-BAYER-2024A103704

PATIENT
  Age: 61 Year
  Sex: Male

DRUGS (1)
  1. NEXAVAR [Suspect]
     Active Substance: SORAFENIB
     Indication: Thyroid cancer metastatic
     Dosage: 400 MG, BID
     Dates: start: 20240405

REACTIONS (4)
  - Prostate cancer [Not Recovered/Not Resolved]
  - Diarrhoea [Recovered/Resolved]
  - Malaise [None]
  - Pallor [None]

NARRATIVE: CASE EVENT DATE: 20240405
